FAERS Safety Report 4881137-X (Version None)
Quarter: 2005Q4

REPORT INFORMATION
  Report Type: 
  Country: None (occurrence: None)
  Receive Date: 20051223
  Receipt Date: 20050915
  Transmission Date: 20060501
  Serious: No
  Sender: FDA-Public Use
  Company Number: 05P-163-0311099-00

PATIENT
  Age: 75 Year
  Sex: Female
  Weight: 73.0291 kg

DRUGS (9)
  1. HUMIRA [Suspect]
     Indication: RHEUMATOID ARTHRITIS
     Dosage: 40 MG, 1 IN 2 WK, SUBCUTANEOUS
     Route: 058
     Dates: start: 20040101
  2. LEVOTHYROXINE SODIUM [Concomitant]
  3. LISINOPRIL [Concomitant]
  4. ESOMEPRAZOLE [Concomitant]
  5. RANITIDINE HYDROCHLORIDE [Concomitant]
  6. SERTRALINE HYDROCHLORIDE [Concomitant]
  7. METHOTREXATE [Concomitant]
  8. PREDNISONE [Concomitant]
  9. LEUCOVEN [Concomitant]

REACTIONS (2)
  - ABDOMINAL DISCOMFORT [None]
  - GASTRIC INFECTION [None]
